FAERS Safety Report 9789797 (Version 2)
Quarter: 2014Q1

REPORT INFORMATION
  Report Type: Spontaneous
  Country: DE (occurrence: DE)
  Receive Date: 20131231
  Receipt Date: 20140131
  Transmission Date: 20141002
  Serious: Yes (Hospitalization)
  Sender: FDA-Public Use
  Company Number: DE-RANBAXY-2013RR-76545

PATIENT
  Age: 71 Year
  Sex: Male
  Weight: 115 kg

DRUGS (8)
  1. ACICLOVIR [Suspect]
     Indication: OPHTHALMIC HERPES ZOSTER
     Dosage: 500 MG, TID
     Route: 065
     Dates: start: 20131116, end: 20131120
  2. ASS [Concomitant]
     Indication: CORONARY ARTERY DISEASE
     Dosage: 100 MG
     Route: 048
  3. CLOPIDOGREL [Concomitant]
     Indication: CORONARY ARTERY DISEASE
     Dosage: 75 MG
     Route: 048
  4. BISOPROLOL [Concomitant]
     Indication: PRODUCT USED FOR UNKNOWN INDICATION
     Dosage: 5 MG
     Route: 048
  5. RAMIPRIL [Concomitant]
     Indication: PRODUCT USED FOR UNKNOWN INDICATION
     Dosage: 2.5 MG
     Route: 048
  6. INEGY 10/20 [Concomitant]
     Indication: PRODUCT USED FOR UNKNOWN INDICATION
     Dosage: UNK
     Route: 048
  7. SPIRONOLACTON [Concomitant]
     Indication: PRODUCT USED FOR UNKNOWN INDICATION
     Dosage: 50 MG
     Route: 048
  8. FUROSEMID [Concomitant]
     Indication: PRODUCT USED FOR UNKNOWN INDICATION
     Dosage: 40 MG
     Route: 048

REACTIONS (4)
  - Confusional state [Recovered/Resolved]
  - Delirium [Recovered/Resolved]
  - Disorientation [Recovered/Resolved]
  - Psychomotor retardation [Recovered/Resolved]
